FAERS Safety Report 24649849 (Version 1)
Quarter: 2024Q4

REPORT INFORMATION
  Report Type: Report from Study
  Country: BR (occurrence: BR)
  Receive Date: 20241121
  Receipt Date: 20241121
  Transmission Date: 20250115
  Serious: Yes (Death, Other)
  Sender: ABBVIE
  Company Number: BR-ABBVIE-6012148

PATIENT
  Age: 81 Year
  Sex: Female
  Weight: 75 kg

DRUGS (1)
  1. SKYRIZI [Suspect]
     Active Substance: RISANKIZUMAB-RZAA
     Indication: Psoriasis
     Route: 058

REACTIONS (3)
  - Fall [Fatal]
  - Haemorrhagic stroke [Fatal]
  - Head injury [Fatal]

NARRATIVE: CASE EVENT DATE: 20240607
